FAERS Safety Report 7213461-X (Version None)
Quarter: 2011Q1

REPORT INFORMATION
  Report Type: 
  Country: None (occurrence: None)
  Receive Date: 20110106
  Receipt Date: 20101223
  Transmission Date: 20110831
  Serious: Yes (Hospitalization)
  Sender: FDA-Public Use
  Company Number: US-SANOFI-AVENTIS-2011SA000735

PATIENT
  Age: 57 Year
  Sex: Female

DRUGS (2)
  1. TRACLEER [Suspect]
     Indication: PULMONARY HYPERTENSION
  2. PLAVIX [Suspect]
     Route: 065

REACTIONS (3)
  - UNEVALUABLE EVENT [None]
  - NON-SMALL CELL LUNG CANCER RECURRENT [None]
  - EPISTAXIS [None]
